FAERS Safety Report 6135416-9 (Version None)
Quarter: 2009Q1

REPORT INFORMATION
  Report Type: 
  Country: None (occurrence: None)
  Receive Date: 20090327
  Receipt Date: 20090316
  Transmission Date: 20090719
  Serious: Yes (Hospitalization)
  Sender: FDA-Public Use
  Company Number: TH-PFIZER INC-2009184286

PATIENT

DRUGS (1)
  1. PHENYTOIN AND PHENYTOIN SODIUM [Suspect]
     Indication: HEAD INJURY
     Dates: start: 20060322

REACTIONS (2)
  - ERYTHEMA MULTIFORME [None]
  - HEPATIC FAILURE [None]
